FAERS Safety Report 5671108-8 (Version None)
Quarter: 2008Q1

REPORT INFORMATION
  Report Type: 
  Country: None (occurrence: None)
  Receive Date: 20080318
  Receipt Date: 20080312
  Transmission Date: 20080703
  Serious: Yes (Hospitalization)
  Sender: FDA-Public Use
  Company Number: JP-SANOFI-SYNTHELABO-A01200800153

PATIENT
  Sex: Male
  Weight: 60 kg

DRUGS (1)
  1. PLAVIX [Suspect]
     Indication: CEREBRAL INFARCTION
     Route: 048
     Dates: start: 20070509, end: 20071231

REACTIONS (3)
  - GASTRIC ULCER [None]
  - LIVER DISORDER [None]
  - RHABDOMYOLYSIS [None]
